FAERS Safety Report 9310990 (Version 1)
Quarter: 2013Q2

REPORT INFORMATION
  Report Type: Spontaneous
  Country: US (occurrence: None)
  Receive Date: 20130523
  Receipt Date: 20130523
  Transmission Date: 20140414
  Serious: Yes (Hospitalization)
  Sender: FDA-Public Use
  Company Number: None

PATIENT
  Age: 72 Year
  Sex: Male
  Weight: 85.9 kg

DRUGS (2)
  1. BICALUTAMIDE [Suspect]
     Dosage: TOTAL DOSE 3450 MG
  2. LEUPROLIDE ACETATE [Suspect]
     Dosage: TOTAL DOSE 22.5 MG

REACTIONS (8)
  - Asthenia [None]
  - Fatigue [None]
  - Pyrexia [None]
  - Urinary tract infection [None]
  - Atelectasis [None]
  - Pneumonia [None]
  - Erythema [None]
  - Fall [None]
